FAERS Safety Report 8543033-6 (Version None)
Quarter: 2012Q3

REPORT INFORMATION
  Report Type: 
  Country: None (occurrence: None)
  Receive Date: 20120727
  Receipt Date: 20120718
  Transmission Date: 20120928
  Serious: Yes (Hospitalization)
  Sender: FDA-Public Use
  Company Number: CA-JNJFOC-20120710066

PATIENT
  Sex: Female
  Weight: 75.4 kg

DRUGS (7)
  1. BOTOX [Concomitant]
     Route: 065
  2. CRESTOR [Concomitant]
     Route: 065
  3. VALACYCLOVIR HYDROCHLORIDE [Concomitant]
     Route: 065
  4. OLMESARTAN MEDOXOMIL [Concomitant]
     Route: 065
  5. REMICADE [Suspect]
     Indication: CROHN'S DISEASE
     Route: 042
     Dates: start: 20110517
  6. ALPRAZOLAM [Concomitant]
     Route: 065
  7. ZOPICLONE [Concomitant]
     Route: 065

REACTIONS (1)
  - GASTROENTERITIS [None]
